FAERS Safety Report 11012605 (Version 1)
Quarter: 2015Q2

REPORT INFORMATION
  Report Type: Spontaneous
  Country: US (occurrence: None)
  Receive Date: 20150410
  Receipt Date: 20150410
  Transmission Date: 20150821
  Serious: Yes (Disabling)
  Sender: FDA-Public Use
  Company Number: None

PATIENT
  Age: 52 Year
  Sex: Male
  Weight: 102.06 kg

DRUGS (15)
  1. GLIMEPIRIDE. [Concomitant]
     Active Substance: GLIMEPIRIDE
  2. BENAZEPRIL HYDROCHLORIDE AND HYDROCHLOROTHIAZIDE [Concomitant]
     Active Substance: BENAZEPRIL HYDROCHLORIDE\HYDROCHLOROTHIAZIDE
  3. AMLODIPINE BESYLATE. [Concomitant]
     Active Substance: AMLODIPINE BESYLATE
  4. ATENOLOL. [Concomitant]
     Active Substance: ATENOLOL
  5. SERTRALINE [Concomitant]
     Active Substance: SERTRALINE HYDROCHLORIDE
  6. MULTIVITAMIN -ADULT 50 PLUS [Concomitant]
  7. ESZOPICLONE. [Suspect]
     Active Substance: ESZOPICLONE
     Indication: DIABETES MELLITUS
     Route: 048
     Dates: start: 20140501, end: 20150408
  8. CINNAMON. [Concomitant]
     Active Substance: CINNAMON
  9. ASPIRIN. [Concomitant]
     Active Substance: ASPIRIN
  10. METFORMIN [Concomitant]
     Active Substance: METFORMIN HYDROCHLORIDE
  11. ESZOPICLONE. [Concomitant]
     Active Substance: ESZOPICLONE
  12. ESZOPICLONE. [Suspect]
     Active Substance: ESZOPICLONE
     Indication: INSOMNIA
     Route: 048
     Dates: start: 20140501, end: 20150408
  13. VITAMIN D2 [Concomitant]
     Active Substance: ERGOCALCIFEROL
  14. PRAVASTATIN [Concomitant]
     Active Substance: PRAVASTATIN\PRAVASTATIN SODIUM
  15. FISH OIL [Concomitant]
     Active Substance: FISH OIL

REACTIONS (3)
  - Nervous system disorder [None]
  - Cognitive disorder [None]
  - Amnesia [None]

NARRATIVE: CASE EVENT DATE: 20150217
